FAERS Safety Report 7868166 (Version 8)
Quarter: 2012Q4

REPORT INFORMATION
  Report Type: 
  Country: IE (occurrence: IE)
  Receive Date: 20110323
  Receipt Date: 20121113
  Transmission Date: 20130627
  Serious: Yes (Disabling, Other)
  Sender: FDA-Public Use
  Company Number: PHFR2011IE01832

PATIENT
  Age: 57 None
  Sex: Male
  Weight: 90 kg

DRUGS (13)
  1. CLOZARIL [Suspect]
     Indication: SCHIZOPHRENIA
     Dosage: 250 mg / nocturnal
     Route: 048
     Dates: start: 20060821
  2. CLOZARIL [Suspect]
     Dosage: 350 mg morning and 175 mg nocte
  3. CLOZARIL [Suspect]
     Dosage: 100 mg morning and 300 mg nocte
     Dates: start: 20110222
  4. CLOZARIL [Suspect]
     Dosage: 225 mg / nocte
     Route: 048
     Dates: start: 20120105
  5. SERTRALINE [Suspect]
     Dosage: UNK UKN, UNK
     Route: 048
     Dates: end: 20110222
  6. VALPROATE SODIUM [Concomitant]
     Indication: CONVULSION
     Dosage: 1200 mg, UNK
     Route: 048
  7. L-THYROXINE [Concomitant]
     Indication: BLOOD THYROID STIMULATING HORMONE ABNORMAL
     Dosage: 50 ug, UNK
     Route: 048
  8. OMEGA-3 FATTY ACIDS [Concomitant]
     Indication: MENTAL DISORDER
     Dosage: 1 g, BID
  9. ATORVASTATIN [Concomitant]
     Indication: HYPERCHOLESTEROLAEMIA
     Dosage: 10 mg, UNK
     Route: 048
  10. BISOPROLOL [Concomitant]
     Indication: TACHYCARDIA
     Dosage: 5 mg, UNK
     Route: 048
  11. MOVICOL [Concomitant]
     Indication: CONSTIPATION
     Dosage: UNK UKN, UNK
     Route: 048
  12. ARIPIPRAZOLE [Concomitant]
     Indication: SCHIZOPHRENIA
     Dosage: 10 mg, UNK
     Route: 048
  13. AMISULPRIDE [Concomitant]
     Indication: SCHIZOPHRENIA
     Dosage: 100 mg, UNK
     Route: 048

REACTIONS (8)
  - Hydronephrosis [Recovered/Resolved]
  - Renal impairment [Recovering/Resolving]
  - Orchitis [Recovered/Resolved]
  - Epididymal infection [Recovered/Resolved]
  - Urinary retention [Recovered/Resolved]
  - Nephritis [Unknown]
  - Urinary incontinence [Recovered/Resolved]
  - Drug interaction [Recovered/Resolved]
